FAERS Safety Report 8378371-3 (Version None)
Quarter: 2012Q2

REPORT INFORMATION
  Report Type: 
  Country: None (occurrence: None)
  Receive Date: 20120521
  Receipt Date: 20120515
  Transmission Date: 20120825
  Serious: Yes (Other)
  Sender: FDA-Public Use
  Company Number: GER/UKI/12/0024337

PATIENT
  Age: 49 Year
  Sex: Male

DRUGS (8)
  1. RISPERIDONE [Suspect]
     Indication: PRODUCT USED FOR UNKNOWN INDICATION
     Dosage: 1 MG, 2 IN 1 D, ORAL
     Route: 048
     Dates: start: 20100608, end: 20120127
  2. CITALOPRAM HYDROBROMIDE [Concomitant]
  3. OLANZAPINE [Suspect]
     Indication: PRODUCT USED FOR UNKNOWN INDICATION
     Dosage: 15 MG, ORAL
     Route: 048
     Dates: start: 20120127
  4. CLOZARIL [Suspect]
     Indication: PRODUCT USED FOR UNKNOWN INDICATION
     Dosage: ORAL 436
     Route: 048
  5. PROCYCLIDINE HYDROCHLORIDE 2MG TAB [Concomitant]
  6. SIMVASTATIN [Concomitant]
  7. PIRENZEPINE (PIRENZEPINE) [Suspect]
     Indication: PRODUCT USED FOR UNKNOWN INDICATION
     Dosage: 5 MG, ORAL
     Route: 048
     Dates: start: 20100608, end: 20120120
  8. VALPROIC ACID [Suspect]
     Indication: PRODUCT USED FOR UNKNOWN INDICATION
     Dosage: 750 MG, ORAL
     Route: 048
     Dates: start: 20100608

REACTIONS (2)
  - PLATELET COUNT DECREASED [None]
  - HEPATITIS [None]
